FAERS Safety Report 7705665-4 (Version None)
Quarter: 2011Q3

REPORT INFORMATION
  Report Type: 
  Country: None (occurrence: None)
  Receive Date: 20110824
  Receipt Date: 20100727
  Transmission Date: 20111222
  Serious: No
  Sender: FDA-Public Use
  Company Number: US-MYLANLABS-2010S1013719

PATIENT
  Age: 59 Year
  Sex: Female

DRUGS (6)
  1. ACIPHEX [Concomitant]
  2. CRESTOR [Concomitant]
  3. TERBINAFINE HYDROCHLORIDE [Suspect]
     Route: 048
     Dates: start: 20100701, end: 20100701
  4. ZETIA [Concomitant]
  5. METOPROLOL [Concomitant]
  6. TERBINAFINE HYDROCHLORIDE [Suspect]
     Indication: ONYCHOMYCOSIS
     Route: 048
     Dates: start: 20100701, end: 20100701

REACTIONS (1)
  - PRURITUS [None]
